FAERS Safety Report 9524211 (Version 1)
Quarter: 2013Q3

REPORT INFORMATION
  Report Type: Spontaneous
  Country: US (occurrence: US)
  Receive Date: 20130916
  Receipt Date: 20130916
  Transmission Date: 20140515
  Serious: No
  Sender: FDA-Public Use
  Company Number: US-B.I. PHARMACEUTICALS,INC./RIDGEFIELD-2013-BI-27674BP

PATIENT
  Age: 57 Year
  Sex: Female

DRUGS (2)
  1. COMBIVENT [Suspect]
     Indication: ASTHMA
     Dosage: STRENGTH: 20 MCG / 100 MCG;
     Route: 055
     Dates: start: 201307
  2. DULERA [Concomitant]
     Indication: ASTHMA
     Dosage: (INHALATION AEROSOL) STRENGTH: 1 PUFF; DAILY DOSE: 2 PUFFS
     Route: 055

REACTIONS (1)
  - Off label use [Not Recovered/Not Resolved]
